FAERS Safety Report 4898693-8 (Version None)
Quarter: 2006Q1

REPORT INFORMATION
  Report Type: 
  Country: None (occurrence: None)
  Receive Date: 20060202
  Receipt Date: 20060126
  Transmission Date: 20060701
  Serious: Yes (Hospitalization)
  Sender: FDA-Public Use
  Company Number: US-BRISTOL-MYERS SQUIBB COMPANY-13261599

PATIENT
  Age: 65 Year
  Sex: Male

DRUGS (10)
  1. CETUXIMAB [Suspect]
     Indication: NON-SMALL CELL LUNG CANCER
     Dosage: 1008 MG (400 MG/M2) INITIATED ON 17-JAN-2006 FOLLOWED BY 250 MG/M2.
     Route: 042
     Dates: start: 20060124, end: 20060124
  2. CARBOPLATIN [Suspect]
     Indication: NON-SMALL CELL LUNG CANCER
     Dosage: AUC 6.
     Route: 042
     Dates: start: 20060124, end: 20060124
  3. TAXOL [Suspect]
     Indication: NON-SMALL CELL LUNG CANCER
     Dosage: 100 MG/M2.
     Route: 042
     Dates: start: 20060124, end: 20060124
  4. ALLEGRA [Concomitant]
     Dates: start: 19980101
  5. ALLOPURINOL [Concomitant]
     Dates: start: 20010101
  6. ASPIRIN [Concomitant]
     Dates: start: 20000101
  7. GLUCOSAMINE [Concomitant]
     Dates: start: 20030101
  8. KADIAN [Concomitant]
     Dates: start: 20051201
  9. MICARDIS [Concomitant]
     Dates: start: 20000101
  10. VYTORIN [Concomitant]
     Dates: start: 20050101

REACTIONS (2)
  - ABDOMINAL PAIN [None]
  - GASTROINTESTINAL NECROSIS [None]
